FAERS Safety Report 6055964-X (Version None)
Quarter: 2009Q1

REPORT INFORMATION
  Report Type: 
  Country: None (occurrence: None)
  Receive Date: 20090128
  Receipt Date: 20090126
  Transmission Date: 20090719
  Serious: Yes (Death)
  Sender: FDA-Public Use
  Company Number: US-B.I. PHARMACEUTICALS,INC./RIDGEFIELD-2009-BP-00913BP

PATIENT
  Sex: Male

DRUGS (4)
  1. SPIRIVA [Suspect]
  2. COMBIVENT [Suspect]
  3. ADVAIR DISKUS 100/50 [Suspect]
  4. VENTOLIN [Suspect]

REACTIONS (1)
  - DEATH [None]
